FAERS Safety Report 23279460 (Version 2)
Quarter: 2024Q3

REPORT INFORMATION
  Report Type: Spontaneous
  Country: US (occurrence: US)
  Receive Date: 20231209
  Receipt Date: 20240830
  Transmission Date: 20241016
  Serious: No
  Sender: SANOFI AVENTIS
  Company Number: US-SA-SAC20231204001629

PATIENT
  Sex: Male

DRUGS (1)
  1. CERDELGA [Suspect]
     Active Substance: ELIGLUSTAT
     Dosage: 1 DF, QD
     Route: 065
     Dates: start: 20231012

REACTIONS (4)
  - Dry skin [Recovering/Resolving]
  - Somnolence [Unknown]
  - Condition aggravated [Unknown]
  - Fatigue [Unknown]

NARRATIVE: CASE EVENT DATE: 20230101
